FAERS Safety Report 15482665 (Version 1)
Quarter: 2018Q4

REPORT INFORMATION
  Report Type: Report from Study
  Country: CN (occurrence: CN)
  Receive Date: 20181010
  Receipt Date: 20181010
  Transmission Date: 20190205
  Serious: Yes (Hospitalization)
  Sender: FDA-Public Use
  Company Number: CN-ASTRAZENECA-2018SF31588

PATIENT
  Age: 21683 Day
  Sex: Male

DRUGS (13)
  1. MEDI4736 [Suspect]
     Active Substance: DURVALUMAB
     Indication: NON-SMALL CELL LUNG CANCER
     Route: 042
     Dates: start: 20171206, end: 20171206
  2. MEDI4736 [Suspect]
     Active Substance: DURVALUMAB
     Indication: NON-SMALL CELL LUNG CANCER
     Route: 042
     Dates: start: 20171104, end: 20171104
  3. PARACETAMOL AND DIHYDROCODEINE TARTRATE TABLETS [Concomitant]
     Indication: PAIN PROPHYLAXIS
     Dosage: 2 TABLET TID
     Route: 048
     Dates: start: 20180102
  4. CALCIUM CARBONATE AND VITAMIN D3 TABLETS [Concomitant]
     Indication: OSTEOPOROSIS PROPHYLAXIS
     Dosage: 1 TABLET DAILY
     Route: 048
     Dates: start: 20180712
  5. MEDI4736 [Suspect]
     Active Substance: DURVALUMAB
     Indication: NON-SMALL CELL LUNG CANCER
     Route: 042
     Dates: start: 20180102, end: 20180102
  6. MEDI4736 [Suspect]
     Active Substance: DURVALUMAB
     Indication: NON-SMALL CELL LUNG CANCER
     Route: 042
     Dates: start: 20180614, end: 20180614
  7. MEDI4736 [Suspect]
     Active Substance: DURVALUMAB
     Indication: NON-SMALL CELL LUNG CANCER
     Route: 042
     Dates: start: 20171007, end: 20171007
  8. MEDI4736 [Suspect]
     Active Substance: DURVALUMAB
     Indication: NON-SMALL CELL LUNG CANCER
     Route: 042
     Dates: start: 20180131, end: 20180131
  9. MEDI4736 [Suspect]
     Active Substance: DURVALUMAB
     Indication: NON-SMALL CELL LUNG CANCER
     Route: 042
     Dates: start: 20180228, end: 20180228
  10. MEDI4736 [Suspect]
     Active Substance: DURVALUMAB
     Indication: NON-SMALL CELL LUNG CANCER
     Route: 042
     Dates: start: 20180517, end: 20180517
  11. MEDI4736 [Suspect]
     Active Substance: DURVALUMAB
     Indication: NON-SMALL CELL LUNG CANCER
     Route: 042
     Dates: start: 20170908, end: 20170908
  12. MEDI4736 [Suspect]
     Active Substance: DURVALUMAB
     Indication: NON-SMALL CELL LUNG CANCER
     Route: 042
     Dates: start: 20180831, end: 20180831
  13. PARACETAMOL AND DIHYDROCODEINE TARTRATE TABLETS [Concomitant]
     Indication: PAIN PROPHYLAXIS
     Dosage: 2 TABLET TID
     Route: 048
     Dates: start: 20171207

REACTIONS (1)
  - Pleural effusion [Recovered/Resolved]

NARRATIVE: CASE EVENT DATE: 20180904
